FAERS Safety Report 5976217-1 (Version None)
Quarter: 2008Q4

REPORT INFORMATION
  Report Type: 
  Country: None (occurrence: None)
  Receive Date: 20081202
  Receipt Date: 20081120
  Transmission Date: 20090506
  Serious: Yes (Death)
  Sender: FDA-Public Use
  Company Number: BR-ROCHE-598488

PATIENT

DRUGS (2)
  1. CEFTRIAXONE [Suspect]
     Route: 042
  2. AZITHROMYCIN [Suspect]
     Route: 042

REACTIONS (1)
  - SUDDEN DEATH [None]
